FAERS Safety Report 8269687-X (Version None)
Quarter: 2012Q2

REPORT INFORMATION
  Report Type: 
  Country: None (occurrence: None)
  Receive Date: 20120405
  Receipt Date: 20120403
  Transmission Date: 20120825
  Serious: Yes (Life-Threatening, Hospitalization, Other)
  Sender: FDA-Public Use
  Company Number: ADR-2011-11041

PATIENT
  Sex: Male

DRUGS (1)
  1. LIORESAL [Suspect]
     Indication: MUSCLE SPASTICITY
     Dosage: UNK MCG, DAILY, INTRATH
     Route: 037

REACTIONS (19)
  - TOXICITY TO VARIOUS AGENTS [None]
  - MENTAL STATUS CHANGES [None]
  - PAIN [None]
  - URINARY TRACT INFECTION [None]
  - DYSTONIA [None]
  - BLOOD CREATINE PHOSPHOKINASE INCREASED [None]
  - WOUND INFECTION STAPHYLOCOCCAL [None]
  - DEPRESSED LEVEL OF CONSCIOUSNESS [None]
  - TREMOR [None]
  - IMPLANT SITE INFECTION [None]
  - BLOOD LACTIC ACID INCREASED [None]
  - PROCEDURAL HAEMORRHAGE [None]
  - COGNITIVE DISORDER [None]
  - DRUG WITHDRAWAL SYNDROME [None]
  - METABOLIC ACIDOSIS [None]
  - HYPERHIDROSIS [None]
  - RESTLESSNESS [None]
  - HYPERTONIA [None]
  - INFECTION [None]
